FAERS Safety Report 6288485-X (Version None)
Quarter: 2009Q3

REPORT INFORMATION
  Report Type: 
  Country: None (occurrence: None)
  Receive Date: 20090729
  Receipt Date: 20090722
  Transmission Date: 20100115
  Serious: Yes (Other)
  Sender: FDA-Public Use
  Company Number: JP-ASTRAZENECA-2009SE02892

PATIENT
  Age: 59 Year
  Sex: Female
  Weight: 45 kg

DRUGS (8)
  1. XYLOCAINE VISCOUS [Suspect]
     Indication: LOCAL ANAESTHESIA
     Route: 049
     Dates: start: 20090616, end: 20090616
  2. XYLOCAINE VISCOUS [Suspect]
     Route: 049
     Dates: start: 20090616, end: 20090616
  3. XYLOCAINE [Suspect]
     Indication: LOCAL ANAESTHESIA
     Route: 049
     Dates: start: 20090616, end: 20090616
  4. PRONASE MS [Concomitant]
     Route: 048
     Dates: start: 20090616, end: 20090616
  5. SODIUM BICARBONATE [Concomitant]
     Route: 048
     Dates: start: 20090616, end: 20090616
  6. BAROS ANTIFOAMING [Concomitant]
     Route: 048
     Dates: start: 20090616, end: 20090616
  7. CEREKINON [Concomitant]
  8. KLARICID [Concomitant]

REACTIONS (1)
  - ANAPHYLACTIC SHOCK [None]
